FAERS Safety Report 4999651-5 (Version None)
Quarter: 2006Q2

REPORT INFORMATION
  Report Type: 
  Country: None (occurrence: None)
  Receive Date: 20060509
  Receipt Date: 20060509
  Transmission Date: 20061013
  Serious: Yes (Hospitalization)
  Sender: FDA-Public Use
  Company Number: None

PATIENT
  Age: 57 Year
  Sex: Female
  Weight: 71.124 kg

DRUGS (1)
  1. TAXOL [Suspect]
     Indication: BREAST CANCER
     Dosage: 145 MG IV
     Route: 042
     Dates: start: 20060316

REACTIONS (6)
  - CHEST PAIN [None]
  - DYSPNOEA [None]
  - ERYTHEMA [None]
  - HEART RATE INCREASED [None]
  - OXYGEN SATURATION DECREASED [None]
  - SCREAMING [None]
